FAERS Safety Report 17540512 (Version 1)
Quarter: 2020Q1

REPORT INFORMATION
  Report Type: Spontaneous
  Country: US (occurrence: US)
  Receive Date: 20200313
  Receipt Date: 20200313
  Transmission Date: 20200409
  Serious: No
  Sender: FDA-Public Use
  Company Number: US-BAYER-2020-042404

PATIENT
  Age: 34 Year
  Sex: Female

DRUGS (1)
  1. MIRENA [Suspect]
     Active Substance: LEVONORGESTREL
     Indication: CONTRACEPTION
     Dosage: 20 ?G PER DAY CONTINUOUSLY
     Dates: start: 20180628, end: 20200304

REACTIONS (3)
  - Device expulsion [Recovered/Resolved]
  - Medical device pain [None]
  - Medical device discomfort [None]

NARRATIVE: CASE EVENT DATE: 20200304
